FAERS Safety Report 5999950-4 (Version None)
Quarter: 2008Q4

REPORT INFORMATION
  Report Type: 
  Country: None (occurrence: None)
  Receive Date: 20081215
  Receipt Date: 20081212
  Transmission Date: 20090506
  Serious: Yes (Life-Threatening, Other)
  Sender: FDA-Public Use
  Company Number: PHHY2008GB29964

PATIENT
  Sex: Male

DRUGS (6)
  1. CLOZARIL [Suspect]
     Dosage: UNK
     Dates: start: 20001207
  2. CITALOPRAM HYDROBROMIDE [Concomitant]
     Indication: DEPRESSION
     Dosage: 30 MG, UNK
     Route: 048
     Dates: start: 20060101
  3. OMEPRAZOLE [Concomitant]
     Indication: GASTRITIS
     Dosage: 20 MG, UNK
     Route: 048
     Dates: start: 20060101
  4. LACTULOSE [Concomitant]
     Indication: CONSTIPATION
     Dosage: 30 ML, UNK
     Dates: start: 20060101
  5. BENZHEXOL [Concomitant]
     Indication: DRUG WITHDRAWAL SYNDROME
     Dosage: 2 MG, UNK
     Dates: start: 20060101
  6. HYOSCINE HBR HYT [Concomitant]
     Indication: SALIVARY HYPERSECRETION
     Dosage: 300 UG, UNK
     Route: 048
     Dates: start: 20070901

REACTIONS (7)
  - ANAEMIA [None]
  - CHEMOTHERAPY [None]
  - JAUNDICE [None]
  - LYMPHATIC DISORDER [None]
  - LYMPHOMA [None]
  - PLATELET COUNT DECREASED [None]
  - PLEURAL EFFUSION [None]
